FAERS Safety Report 12788764 (Version 1)
Quarter: 2016Q3

REPORT INFORMATION
  Report Type: Spontaneous
  Country: US (occurrence: US)
  Receive Date: 20160928
  Receipt Date: 20160928
  Transmission Date: 20161109
  Serious: Yes (Other)
  Sender: FDA-Public Use
  Company Number: US-BAYER-2016-182156

PATIENT
  Age: 82 Year
  Sex: Male

DRUGS (2)
  1. MIRALAX [Suspect]
     Active Substance: POLYETHYLENE GLYCOL 3350
     Indication: GASTROINTESTINAL DISORDER
     Dosage: MIRALAX 14 DAY DOSE BOTTLE 8.3OZ
     Route: 048
     Dates: start: 201601
  2. MIRALAX [Suspect]
     Active Substance: POLYETHYLENE GLYCOL 3350
     Indication: CONSTIPATION
     Dosage: TOOK 2 CAPFULS EVERY MORNING. MIRALAX 45 DAY DOSE BOTTLE 26.9OZ
     Route: 048
     Dates: start: 201601

REACTIONS (4)
  - Wrong technique in product usage process [Unknown]
  - Intestinal obstruction [Recovered/Resolved]
  - Abnormal faeces [None]
  - Product use issue [Unknown]

NARRATIVE: CASE EVENT DATE: 201601
